FAERS Safety Report 9199970 (Version 1)
Quarter: 2013Q1

REPORT INFORMATION
  Report Type: Spontaneous
  Country: GB (occurrence: GB)
  Receive Date: 20130329
  Receipt Date: 20130329
  Transmission Date: 20140127
  Serious: Yes (Other)
  Sender: FDA-Public Use
  Company Number: GB-PFIZER INC-2013098970

PATIENT
  Sex: Male

DRUGS (1)
  1. PREGABALIN [Suspect]
     Indication: COMPLEX REGIONAL PAIN SYNDROME
     Dosage: 250 MG, 2X/DAY
     Route: 048
     Dates: start: 2004, end: 2013

REACTIONS (1)
  - Autism [Not Recovered/Not Resolved]
